FAERS Safety Report 16124694 (Version 1)
Quarter: 2019Q1

REPORT INFORMATION
  Report Type: Report from Study
  Country: US (occurrence: US)
  Receive Date: 20190327
  Receipt Date: 20190327
  Transmission Date: 20190418
  Serious: No
  Sender: FDA-Public Use
  Company Number: PHEH2019US012697

PATIENT
  Sex: Female

DRUGS (1)
  1. ENTRESTO [Suspect]
     Active Substance: SACUBITRIL\VALSARTAN
     Indication: CARDIAC FAILURE CONGESTIVE
     Dosage: 1 DF (SACUBITIRIL 24 MG AND VALSARTAN 26 MG)), BID
     Route: 065
     Dates: start: 20160919

REACTIONS (2)
  - Ejection fraction decreased [Unknown]
  - Fatigue [Unknown]
